FAERS Safety Report 24286196 (Version 3)
Quarter: 2025Q1

REPORT INFORMATION
  Report Type: Spontaneous
  Country: JP (occurrence: JP)
  Receive Date: 20240905
  Receipt Date: 20250114
  Transmission Date: 20250409
  Serious: Yes (Death)
  Sender: PFIZER
  Company Number: JP-PFIZER INC-PV202400115463

PATIENT
  Age: 81 Year
  Sex: Male
  Weight: 60 kg

DRUGS (11)
  1. ELREXFIO [Suspect]
     Active Substance: ELRANATAMAB-BCMM
     Indication: Plasma cell myeloma refractory
     Route: 058
     Dates: start: 20240701
  2. ELREXFIO [Suspect]
     Active Substance: ELRANATAMAB-BCMM
     Route: 058
     Dates: start: 20240704
  3. ELREXFIO [Suspect]
     Active Substance: ELRANATAMAB-BCMM
     Route: 058
     Dates: start: 20240711
  4. ELREXFIO [Suspect]
     Active Substance: ELRANATAMAB-BCMM
     Route: 058
     Dates: start: 20240718
  5. FEBUXOSTAT [Concomitant]
     Active Substance: FEBUXOSTAT
     Indication: Prophylaxis
     Dosage: EVERY DAY
  6. LANSOPRAZOLE [Concomitant]
     Active Substance: LANSOPRAZOLE
     Indication: Prophylaxis
     Dosage: 15 MG, 1X/DAY
  7. ZOVIRAX [Concomitant]
     Active Substance: ACYCLOVIR
     Indication: Prophylaxis
     Dosage: 3 TIMES A WEEK
  8. PIPERACILLIN SODIUM\TAZOBACTAM SODIUM [Concomitant]
     Active Substance: PIPERACILLIN SODIUM\TAZOBACTAM SODIUM
     Indication: Infection
     Dosage: EVERY DAY
  9. CANRENOATE POTASSIUM [Concomitant]
     Active Substance: CANRENOATE POTASSIUM
     Indication: Renal failure
     Dosage: EVERY DAY
  10. LASIX [Concomitant]
     Active Substance: FUROSEMIDE
     Indication: Renal failure
     Dosage: EVERY DAY
  11. SULFAMETHOXAZOLE\TRIMETHOPRIM [Concomitant]
     Active Substance: SULFAMETHOXAZOLE\TRIMETHOPRIM
     Indication: Prophylaxis

REACTIONS (2)
  - Gastrointestinal haemorrhage [Fatal]
  - Neoplasm progression [Fatal]

NARRATIVE: CASE EVENT DATE: 20240720
